FAERS Safety Report 6312307-1 (Version None)
Quarter: 2009Q3

REPORT INFORMATION
  Report Type: 
  Country: None (occurrence: None)
  Receive Date: 20090817
  Receipt Date: 20090812
  Transmission Date: 20100115
  Serious: Yes (Death)
  Sender: FDA-Public Use
  Company Number: US-GILEAD-2009-0023476

PATIENT
  Sex: Female

DRUGS (13)
  1. LETAIRIS [Suspect]
     Indication: PULMONARY ARTERIAL HYPERTENSION
     Route: 048
     Dates: start: 20090530
  2. FUROSEMIDE [Concomitant]
  3. RAMIPRIL [Concomitant]
  4. DIOVAN [Concomitant]
  5. ATENOLOL [Concomitant]
  6. NORVASC [Concomitant]
  7. PLAQUENIL [Concomitant]
  8. PROAIR HFA [Concomitant]
  9. PREDNISONE [Concomitant]
  10. OSCAL [Concomitant]
  11. COMIL [Concomitant]
  12. PREVACID [Concomitant]
  13. POTASSIUM CHLORIDE [Concomitant]

REACTIONS (1)
  - DEATH [None]
